FAERS Safety Report 5233523-6 (Version None)
Quarter: 2007Q1

REPORT INFORMATION
  Report Type: 
  Country: None (occurrence: None)
  Receive Date: 20070208
  Receipt Date: 20070205
  Transmission Date: 20070707
  Serious: Yes (Other)
  Sender: FDA-Public Use
  Company Number: GB-ELI_LILLY_AND_COMPANY-GB200605004332

PATIENT
  Age: 34 Year
  Sex: Male

DRUGS (8)
  1. ZYPREXA [Suspect]
     Dosage: 20 MG, DAILY (1/D)
     Dates: start: 20060302
  2. ZAPONEX [Concomitant]
     Indication: SCHIZOPHRENIA
     Dosage: UNK, UNK
     Dates: start: 20050223, end: 20060203
  3. VALPROIC ACID [Concomitant]
     Indication: SCHIZOPHRENIA
     Dosage: 1800 MG, DAILY (1/D)
     Route: 048
     Dates: start: 20011114, end: 20060331
  4. AMISULPRIDE [Concomitant]
     Indication: MOOD SWINGS
     Dosage: 400 MG, DAILY (1/D)
     Route: 048
     Dates: start: 20031014, end: 20060206
  5. VENLAFAXINE HCL [Concomitant]
     Route: 048
  6. LANSOPRAZOLE [Concomitant]
     Dosage: 15 MG, DAILY (1/D)
  7. ARIPIPRAZOLE [Concomitant]
     Dosage: 15 MG, DAILY (1/D)
     Dates: start: 20060206, end: 20060306
  8. PROPRANOLOL [Concomitant]
     Dosage: 40 MG, DAILY (1/D)

REACTIONS (2)
  - NEUTROPENIA [None]
  - WHITE BLOOD CELL COUNT DECREASED [None]
